FAERS Safety Report 12200141 (Version 2)
Quarter: 2016Q2

REPORT INFORMATION
  Report Type: Spontaneous
  Country: NL (occurrence: NL)
  Receive Date: 20160322
  Receipt Date: 20160415
  Transmission Date: 20160815
  Serious: Yes (Other)
  Sender: FDA-Public Use
  Company Number: NL-ASTELLAS-2016US009237

PATIENT
  Sex: Male

DRUGS (2)
  1. BETMIGA [Suspect]
     Active Substance: MIRABEGRON
     Indication: HYPERTONIC BLADDER
     Route: 065
     Dates: start: 201602
  2. BETMIGA [Suspect]
     Active Substance: MIRABEGRON
     Indication: CEREBROVASCULAR ACCIDENT

REACTIONS (1)
  - Myasthenia gravis [Recovering/Resolving]
